FAERS Safety Report 23282471 (Version 1)
Quarter: 2023Q4

REPORT INFORMATION
  Report Type: Spontaneous
  Country: US (occurrence: None)
  Receive Date: 20231208
  Receipt Date: 20231208
  Transmission Date: 20240110
  Serious: Yes (Life-Threatening, Hospitalization, Other)
  Sender: FDA-Public Use
  Company Number: None

PATIENT
  Age: 28 Year
  Sex: Male
  Weight: 90 kg

DRUGS (5)
  1. WEGOVY [Suspect]
     Active Substance: SEMAGLUTIDE
     Indication: Weight decreased
     Dates: start: 20230403, end: 20230614
  2. DEVICE [Concomitant]
     Active Substance: DEVICE
  3. CLOMIPHENE [Concomitant]
     Active Substance: CLOMIPHENE
  4. SERTRALINE [Concomitant]
     Active Substance: SERTRALINE HYDROCHLORIDE
  5. ROSUVASTATIN [Concomitant]
     Active Substance: ROSUVASTATIN

REACTIONS (4)
  - Impaired gastric emptying [None]
  - Suicidal ideation [None]
  - Vomiting [None]
  - Withdrawal syndrome [None]

NARRATIVE: CASE EVENT DATE: 20230614
